FAERS Safety Report 21903365 (Version 2)
Quarter: 2023Q1

REPORT INFORMATION
  Report Type: Spontaneous
  Country: ES (occurrence: ES)
  Receive Date: 20230124
  Receipt Date: 20230220
  Transmission Date: 20230417
  Serious: Yes (Other)
  Sender: FDA-Public Use
  Company Number: ES-SA-SAC20230123001362

PATIENT
  Age: 50 Year
  Sex: Male

DRUGS (5)
  1. DUPIXENT [Suspect]
     Active Substance: DUPILUMAB
     Indication: Asthma
     Dosage: 300 MG
     Route: 065
  2. DUPIXENT [Suspect]
     Active Substance: DUPILUMAB
     Indication: Chronic rhinosinusitis with nasal polyps
  3. PREDNISONE [Concomitant]
     Active Substance: PREDNISONE
     Dosage: UNK, QD (30 TO 60 MG)
     Route: 048
  4. MEPOLIZUMAB [Concomitant]
     Active Substance: MEPOLIZUMAB
     Indication: Asthma
     Dosage: UNK
     Route: 065
  5. MEPOLIZUMAB [Concomitant]
     Active Substance: MEPOLIZUMAB
     Indication: Chronic rhinosinusitis with nasal polyps

REACTIONS (4)
  - Cellulitis [Unknown]
  - Musculoskeletal pain [Unknown]
  - Eosinophil count increased [Unknown]
  - Arthralgia [Unknown]
